FAERS Safety Report 16549790 (Version 1)
Quarter: 2019Q3

REPORT INFORMATION
  Report Type: Spontaneous
  Country: US (occurrence: US)
  Receive Date: 20190710
  Receipt Date: 20190710
  Transmission Date: 20191004
  Serious: Yes (Life-Threatening, Hospitalization, Other)
  Sender: FDA-Public Use
  Company Number: US-MICRO LABS LIMITED-ML2019-01569

PATIENT
  Age: 71 Year
  Sex: Male

DRUGS (2)
  1. SIMVASTATIN. [Suspect]
     Active Substance: SIMVASTATIN
  2. ATORVASTATIN [Suspect]
     Active Substance: ATORVASTATIN

REACTIONS (7)
  - Liver function test abnormal [Unknown]
  - Quadriparesis [Unknown]
  - Dysphagia [Unknown]
  - Weight decreased [Unknown]
  - Salivary hypersecretion [Unknown]
  - Myopathy toxic [Unknown]
  - Dysphonia [Unknown]
